FAERS Safety Report 5978869-9 (Version None)
Quarter: 2008Q4

REPORT INFORMATION
  Report Type: 
  Country: None (occurrence: None)
  Receive Date: 20081126
  Receipt Date: 20081114
  Transmission Date: 20090506
  Serious: Yes (Hospitalization, Other)
  Sender: FDA-Public Use
  Company Number: 100#03#2008-05783

PATIENT
  Age: 67 Year

DRUGS (9)
  1. VENLAFAXINE HCL [Suspect]
     Indication: SCHIZOPHRENIA
     Dosage: 75MG ONCE DAILY, ORAL
     Route: 048
  2. CYCLIZINE [Concomitant]
  3. FERROUS GLUCONATE (IRON) [Concomitant]
  4. FOLIC ACID [Concomitant]
  5. MULTIVITAMIN PREPARARTION [Concomitant]
  6. ACETAMINOPHEN [Concomitant]
  7. PROCHLORPERAZINE [Concomitant]
  8. QUETIAPINE FUMARATE [Concomitant]
  9. RANITIDINE [Concomitant]

REACTIONS (3)
  - CONSTIPATION [None]
  - EROSIVE DUODENITIS [None]
  - GASTROINTESTINAL HAEMORRHAGE [None]
